FAERS Safety Report 5469051-2 (Version None)
Quarter: 2007Q3

REPORT INFORMATION
  Report Type: 
  Country: None (occurrence: None)
  Receive Date: 20070820
  Receipt Date: 20070710
  Transmission Date: 20080115
  Serious: No
  Sender: FDA-Public Use
  Company Number: WAES 0707USA01807

PATIENT
  Age: 69 Year
  Sex: Male

DRUGS (7)
  1. JANUVIA [Suspect]
     Indication: TYPE 2 DIABETES MELLITUS
     Dosage: 100 MG/DAILY/PO
     Route: 048
     Dates: start: 20070401
  2. NEXIUM [Concomitant]
  3. PLAVIX [Concomitant]
  4. PRAVACHOL [Concomitant]
  5. ASPIRIN [Concomitant]
  6. LISINOPRIL [Concomitant]
  7. METFORMIN [Concomitant]

REACTIONS (1)
  - FEELING ABNORMAL [None]
